FAERS Safety Report 20541615 (Version 2)
Quarter: 2022Q4

REPORT INFORMATION
  Report Type: Report from Study
  Country: US (occurrence: US)
  Receive Date: 20220302
  Receipt Date: 20221014
  Transmission Date: 20230112
  Serious: Yes (Hospitalization, Other)
  Sender: FDA-Public Use
  Company Number: US-TAKEDA-US201844287

PATIENT
  Age: 51 Year
  Sex: Female
  Weight: 51.247 kg

DRUGS (14)
  1. TEDUGLUTIDE [Suspect]
     Active Substance: TEDUGLUTIDE
     Indication: Short-bowel syndrome
     Dosage: 2.8 MILLIGRAM
     Route: 042
     Dates: start: 20131020, end: 20150202
  2. TEDUGLUTIDE [Suspect]
     Active Substance: TEDUGLUTIDE
     Indication: Short-bowel syndrome
     Dosage: 2.8 MILLIGRAM
     Route: 042
     Dates: start: 20131020, end: 20150202
  3. TEDUGLUTIDE [Suspect]
     Active Substance: TEDUGLUTIDE
     Indication: Short-bowel syndrome
     Dosage: 2.8 MILLIGRAM
     Route: 042
     Dates: start: 20131020, end: 20150202
  4. TEDUGLUTIDE [Suspect]
     Active Substance: TEDUGLUTIDE
     Indication: Short-bowel syndrome
     Dosage: 2.8 MILLIGRAM
     Route: 042
     Dates: start: 20131020, end: 20150202
  5. TEDUGLUTIDE [Suspect]
     Active Substance: TEDUGLUTIDE
     Dosage: 2.8 MILLIGRAM
     Route: 042
     Dates: start: 20150203, end: 201511
  6. TEDUGLUTIDE [Suspect]
     Active Substance: TEDUGLUTIDE
     Dosage: 2.8 MILLIGRAM
     Route: 042
     Dates: start: 20150203, end: 201511
  7. TEDUGLUTIDE [Suspect]
     Active Substance: TEDUGLUTIDE
     Dosage: 2.8 MILLIGRAM
     Route: 042
     Dates: start: 20150203, end: 201511
  8. TEDUGLUTIDE [Suspect]
     Active Substance: TEDUGLUTIDE
     Dosage: 2.8 MILLIGRAM
     Route: 042
     Dates: start: 20150203, end: 201511
  9. PANTOPRAZOLE [Concomitant]
     Active Substance: PANTOPRAZOLE
     Indication: Gastrooesophageal reflux disease
  10. VITAMIN D3 [Concomitant]
     Active Substance: CHOLECALCIFEROL
     Indication: Vitamin supplementation
  11. LIDOCAINE [Concomitant]
     Active Substance: LIDOCAINE
     Indication: Hepatic encephalopathy
     Dosage: UNK UNK, QD
     Route: 065
     Dates: start: 20200902, end: 20200902
  12. ECOTRIN [Concomitant]
     Active Substance: ASPIRIN
     Indication: Hepatic encephalopathy
     Dosage: 81 MILLIGRAM
     Route: 048
     Dates: start: 20200902, end: 20200902
  13. KEPPRA [Concomitant]
     Active Substance: LEVETIRACETAM
     Indication: Hepatic encephalopathy
     Dosage: 750 MILLIGRAM, BID
     Route: 048
     Dates: start: 20200902, end: 20200902
  14. PROGRAF [Concomitant]
     Active Substance: TACROLIMUS
     Indication: Hepatic encephalopathy
     Dosage: 2 MILLIGRAM, BID
     Route: 048
     Dates: start: 20200902, end: 20200902

REACTIONS (2)
  - Haemophilus infection [Recovered/Resolved]
  - Vascular device infection [Recovered/Resolved]

NARRATIVE: CASE EVENT DATE: 20170225
